FAERS Safety Report 4602371-X (Version None)
Quarter: 2005Q1

REPORT INFORMATION
  Report Type: 
  Country: None (occurrence: None)
  Receive Date: 20050307
  Receipt Date: 20050223
  Transmission Date: 20050727
  Serious: Yes (Other)
  Sender: FDA-Public Use
  Company Number: 2005023119

PATIENT
  Age: 76 Year
  Sex: Female

DRUGS (2)
  1. LIPITOR [Suspect]
     Indication: HYPERCHOLESTEROLAEMIA
     Dates: start: 20040101
  2. THYROID TAB [Concomitant]

REACTIONS (3)
  - CATARACT [None]
  - CONDITION AGGRAVATED [None]
  - DIPLOPIA [None]
